FAERS Safety Report 6529074-9 (Version None)
Quarter: 2009Q4

REPORT INFORMATION
  Report Type: 
  Country: None (occurrence: None)
  Receive Date: 20091222
  Receipt Date: 20091208
  Transmission Date: 20100525
  Serious: Yes (Hospitalization)
  Sender: FDA-Public Use
  Company Number: AE-2009-311

PATIENT
  Age: 79 Year
  Sex: Female

DRUGS (11)
  1. FUROSEMIDE [Suspect]
     Indication: DEMENTIA ALZHEIMER'S TYPE
     Dosage: 40MG, QD, ORAL
     Route: 048
     Dates: start: 20071112
  2. LISINOPRIL [Suspect]
     Indication: DEMENTIA ALZHEIMER'S TYPE
     Dosage: 10MG, QD, ORAL
     Route: 048
  3. PROTHIPENDYL HYDROCHLORIDE [Suspect]
     Indication: DEMENTIA ALZHEIMER'S TYPE
     Dosage: 80MG,QD, ORAL
     Route: 048
     Dates: start: 20071107
  4. QUETIAPINE [Suspect]
     Indication: DEMENTIA ALZHEIMER'S TYPE
     Dosage: SEE IMAGE
     Route: 048
     Dates: start: 20071122, end: 20071123
  5. QUETIAPINE [Suspect]
     Indication: DEMENTIA ALZHEIMER'S TYPE
     Dosage: SEE IMAGE
     Route: 048
     Dates: start: 20071125, end: 20071126
  6. QUETIAPINE [Suspect]
     Indication: DEMENTIA ALZHEIMER'S TYPE
     Dosage: SEE IMAGE
     Route: 048
     Dates: start: 20071128, end: 20071129
  7. QUETIAPINE [Suspect]
     Indication: DEMENTIA ALZHEIMER'S TYPE
     Dosage: SEE IMAGE
     Route: 048
     Dates: start: 20071107
  8. QUETIAPINE [Suspect]
     Indication: DEMENTIA ALZHEIMER'S TYPE
     Dosage: SEE IMAGE
     Route: 048
     Dates: start: 20071120
  9. QUETIAPINE [Suspect]
     Indication: DEMENTIA ALZHEIMER'S TYPE
     Dosage: SEE IMAGE
     Route: 048
     Dates: start: 20071121
  10. QUETIAPINE [Suspect]
     Indication: DEMENTIA ALZHEIMER'S TYPE
     Dosage: SEE IMAGE
     Route: 048
     Dates: start: 20071124
  11. QUETIAPINE [Suspect]
     Indication: DEMENTIA ALZHEIMER'S TYPE
     Dosage: SEE IMAGE
     Route: 048
     Dates: start: 20071130

REACTIONS (1)
  - CIRCULATORY COLLAPSE [None]
